FAERS Safety Report 13042782 (Version 1)
Quarter: 2016Q4

REPORT INFORMATION
  Report Type: Report from Study
  Country: CA (occurrence: CA)
  Receive Date: 20161219
  Receipt Date: 20161219
  Transmission Date: 20170207
  Serious: Yes (Other)
  Sender: FDA-Public Use
  Company Number: CA-GLAXOSMITHKLINE-CA2016GSK186963

PATIENT
  Age: 49 Year
  Sex: Female

DRUGS (7)
  1. HUMIRA [Concomitant]
     Active Substance: ADALIMUMAB
  2. ESCITALOPRAM [Concomitant]
     Active Substance: ESCITALOPRAM OXALATE
  3. DICLOFENAC DIETHYLAMMONIUM SALT [Suspect]
     Active Substance: DICLOFENAC DIETHYLAMINE
     Indication: PRODUCT USED FOR UNKNOWN INDICATION
     Dosage: UNK
     Route: 065
  4. ENBREL [Concomitant]
     Active Substance: ETANERCEPT
  5. VITAMIN D3 [Concomitant]
     Active Substance: CHOLECALCIFEROL
  6. METHOTREXATE. [Concomitant]
     Active Substance: METHOTREXATE
  7. REMICADE [Concomitant]
     Active Substance: INFLIXIMAB
     Dosage: UNK
     Dates: end: 20161011

REACTIONS (1)
  - Lower respiratory tract infection viral [Unknown]

NARRATIVE: CASE EVENT DATE: 201611
